FAERS Safety Report 19525096 (Version 1)
Quarter: 2021Q3

REPORT INFORMATION
  Report Type: Spontaneous
  Country: US (occurrence: US)
  Receive Date: 20210712
  Receipt Date: 20210712
  Transmission Date: 20211014
  Serious: No
  Sender: FDA-Public Use
  Company Number: None

PATIENT
  Sex: Male
  Weight: 81.65 kg

DRUGS (18)
  1. HALOBETASOL [Concomitant]
     Active Substance: HALOBETASOL PROPIONATE
  2. HYDROCHLOROTHIAZIDE. [Concomitant]
     Active Substance: HYDROCHLOROTHIAZIDE
  3. FLOMAX [Concomitant]
     Active Substance: TAMSULOSIN HYDROCHLORIDE
  4. DEXAMETHASONE. [Concomitant]
     Active Substance: DEXAMETHASONE
  5. BRAFTOVI [Concomitant]
     Active Substance: ENCORAFENIB
  6. MEKTOVI [Suspect]
     Active Substance: BINIMETINIB
     Indication: PLASMA CELL MYELOMA
     Route: 048
  7. OMEPRAZOLE. [Concomitant]
     Active Substance: OMEPRAZOLE
  8. VALACYCLOVI R [Concomitant]
  9. PROPRANOLOL [Concomitant]
     Active Substance: PROPRANOLOL HYDROCHLORIDE
  10. JARDIANCE [Concomitant]
     Active Substance: EMPAGLIFLOZIN
  11. KETOCONAZOLE. [Concomitant]
     Active Substance: KETOCONAZOLE
  12. BRAFTOVI [Suspect]
     Active Substance: ENCORAFENIB
     Indication: PLASMA CELL MYELOMA
     Route: 048
  13. ATIVAN [Concomitant]
     Active Substance: LORAZEPAM
  14. LOSARTAN. [Concomitant]
     Active Substance: LOSARTAN
  15. KEPPRA [Concomitant]
     Active Substance: LEVETIRACETAM
  16. MEKTOVI [Concomitant]
     Active Substance: BINIMETINIB
  17. TRIAMCINOLONE ACETONIDE. [Concomitant]
     Active Substance: TRIAMCINOLONE ACETONIDE
  18. KETOCONAZOLE. [Concomitant]
     Active Substance: KETOCONAZOLE

REACTIONS (1)
  - Brain oedema [None]
